FAERS Safety Report 7456404-6 (Version None)
Quarter: 2011Q1

REPORT INFORMATION
  Report Type: 
  Country: None (occurrence: None)
  Receive Date: 20110302
  Receipt Date: 20110118
  Transmission Date: 20110831
  Serious: Yes (Other)
  Sender: FDA-Public Use
  Company Number: 017284

PATIENT
  Sex: Female
  Weight: 64.9 kg

DRUGS (13)
  1. TRANXENE [Concomitant]
  2. TEGRETOL [Concomitant]
  3. VITAMIN B-12 [Concomitant]
  4. OXYCODONE HCL [Concomitant]
  5. AMITRIPTYLINE HCL [Concomitant]
  6. LORTAB [Concomitant]
  7. TORADOL [Concomitant]
  8. CIMZIA [Suspect]
     Indication: CROHN'S DISEASE
     Dosage: 400 MG 1X/4 WEEKS SUBCUTANEOUS
     Route: 058
     Dates: start: 20100222, end: 20100101
  9. LUNESTA [Concomitant]
  10. BEROCCA PLUS [Concomitant]
  11. PHENERGAN HCL [Concomitant]
  12. MELPHALAN HYDROCHLORIDE [Concomitant]
  13. CENESTIN [Concomitant]

REACTIONS (5)
  - ABDOMINAL PAIN [None]
  - CONFUSIONAL STATE [None]
  - FATIGUE [None]
  - CHEST PAIN [None]
  - SPEECH DISORDER [None]
